FAERS Safety Report 6041156-7 (Version None)
Quarter: 2009Q1

REPORT INFORMATION
  Report Type: 
  Country: None (occurrence: None)
  Receive Date: 20090116
  Receipt Date: 20080908
  Transmission Date: 20090719
  Serious: Yes (Other)
  Sender: FDA-Public Use
  Company Number: US-BRISTOL-MYERS SQUIBB COMPANY-14327811

PATIENT
  Age: 60 Year
  Sex: Male
  Weight: 79 kg

DRUGS (3)
  1. ABILIFY [Suspect]
     Indication: BIPOLAR DISORDER
     Dosage: TOOK MEDICATION 10MG/D FOR 1 1/2 MONTHS A YEAR AGO AND STOPPED.RESTARTED WITH 10MG/D IN AUG08
  2. XANAX [Suspect]
     Indication: SLEEP DISORDER
     Dosage: 2 TABLETS TAKEN.
  3. LAMICTAL [Concomitant]

REACTIONS (7)
  - AMNESIA [None]
  - DEPRESSED MOOD [None]
  - HALLUCINATION [None]
  - INSOMNIA [None]
  - OEDEMA PERIPHERAL [None]
  - PRURITUS [None]
  - SOMNOLENCE [None]
